FAERS Safety Report 6286779-5 (Version None)
Quarter: 2009Q3

REPORT INFORMATION
  Report Type: 
  Country: None (occurrence: None)
  Receive Date: 20090728
  Receipt Date: 20090710
  Transmission Date: 20100115
  Serious: Yes (Hospitalization)
  Sender: FDA-Public Use
  Company Number: US-PFIZER INC-2009194747

PATIENT
  Sex: Male
  Weight: 136.4 kg

DRUGS (15)
  1. SILDENAFIL CITRATE [Suspect]
     Indication: PULMONARY HYPERTENSION
     Dosage: 20 MG, 3X/DAY
     Route: 048
     Dates: start: 20090225, end: 20090322
  2. SILDENAFIL CITRATE [Suspect]
     Dosage: 20 MG, 3X/DAY
     Route: 048
     Dates: start: 20090401
  3. WARFARIN [Concomitant]
     Indication: THROMBOSIS
     Dosage: 5 MG, 1X/DAY
     Route: 048
  4. HYDROXYUREA [Concomitant]
     Indication: SICKLE CELL ANAEMIA
     Dosage: 1500 MG, 1X/DAY
     Route: 048
  5. DIGOXIN [Concomitant]
     Indication: HEART RATE ABNORMAL
     Dosage: 0.125 MG, 1X/DAY
     Route: 048
  6. GABAPENTIN [Concomitant]
     Indication: CEREBROVASCULAR ACCIDENT
     Dosage: 800 MG, 1 IN 8 HR
     Route: 048
     Dates: start: 20060704
  7. POTASSIUM CHLORIDE [Concomitant]
     Indication: ELECTROLYTE SUBSTITUTION THERAPY
     Dosage: 10 MEQ, 1X/DAY
     Route: 048
  8. FUROSEMIDE [Concomitant]
     Indication: BLOOD PRESSURE
     Dosage: 40 MG, 1X/DAY
     Route: 048
     Dates: end: 20090326
  9. FUROSEMIDE [Concomitant]
     Dosage: 40 MG, 2X/DAY
     Route: 048
     Dates: start: 20090326
  10. MAGNESIUM OXIDE [Concomitant]
     Indication: SUPPLEMENTATION THERAPY
     Dosage: 800 MG, 1X/DAY
     Route: 048
  11. BUPROPION [Concomitant]
     Indication: DEPRESSION
     Dosage: 100 MG, 1X/DAY
     Route: 048
     Dates: end: 20090421
  12. ENALAPRIL [Concomitant]
     Indication: HYPERTENSION
     Dosage: 20 MG, 1X/DAY
     Route: 048
  13. ALPRAZOLAM [Concomitant]
     Indication: ANXIETY
     Dosage: 1 MG, AS NEEDED
     Route: 048
  14. OXYCET [Concomitant]
     Indication: ANALGESIA
     Dosage: 10/650 MG
     Route: 048
  15. TRAZODONE [Concomitant]
     Indication: SOMNOLENCE
     Dosage: AT BEDTIME
     Route: 048

REACTIONS (1)
  - CARDIAC FAILURE CONGESTIVE [None]
